FAERS Safety Report 10189657 (Version 1)
Quarter: 2014Q2

REPORT INFORMATION
  Report Type: Spontaneous
  Country: US (occurrence: US)
  Receive Date: 20140522
  Receipt Date: 20140522
  Transmission Date: 20141212
  Serious: Yes (Life-Threatening)
  Sender: FDA-Public Use
  Company Number: US-SANOFI-AVENTIS-2013SA083948

PATIENT
  Age: 11 Year
  Sex: Female

DRUGS (2)
  1. LANTUS OPTICLIK [Suspect]
     Indication: TYPE 1 DIABETES MELLITUS
     Route: 058
  2. OPTICLICK [Concomitant]
     Indication: TYPE 1 DIABETES MELLITUS

REACTIONS (1)
  - Hypoglycaemic seizure [Recovered/Resolved]
